FAERS Safety Report 20329176 (Version 1)
Quarter: 2022Q1

REPORT INFORMATION
  Report Type: Report from Study
  Country: US (occurrence: US)
  Receive Date: 20220112
  Receipt Date: 20220112
  Transmission Date: 20220423
  Serious: Yes (Other)
  Sender: FDA-Public Use
  Company Number: US-ABBVIE-22K-163-4225467-00

PATIENT
  Age: 78 Year
  Sex: Female

DRUGS (2)
  1. DUOPA [Suspect]
     Active Substance: CARBIDOPA\LEVODOPA
     Indication: Product used for unknown indication
     Route: 050
     Dates: start: 20210215
  2. DUOPA [Suspect]
     Active Substance: CARBIDOPA\LEVODOPA

REACTIONS (8)
  - SARS-CoV-2 test positive [Unknown]
  - Complication associated with device [Unknown]
  - Stoma site haemorrhage [Unknown]
  - Stoma site discharge [Unknown]
  - Stoma site erythema [Unknown]
  - Stoma site hypergranulation [Unknown]
  - Dry mouth [Unknown]
  - Stoma complication [Unknown]

NARRATIVE: CASE EVENT DATE: 20211201
